FAERS Safety Report 16321507 (Version 1)
Quarter: 2019Q2

REPORT INFORMATION
  Report Type: Spontaneous
  Country: GB (occurrence: GB)
  Receive Date: 20190516
  Receipt Date: 20190516
  Transmission Date: 20190711
  Serious: Yes (Hospitalization)
  Sender: FDA-Public Use
  Company Number: GB-TEVA-2019-GB-1049918

PATIENT
  Age: 93 Year
  Sex: Female
  Weight: 54.9 kg

DRUGS (7)
  1. BENDROFLUMETHIAZIDE [Concomitant]
     Active Substance: BENDROFLUMETHIAZIDE
  2. WARFARIN [Concomitant]
     Active Substance: WARFARIN
  3. FELODIPINE. [Concomitant]
     Active Substance: FELODIPINE
  4. RAMIPRIL. [Concomitant]
     Active Substance: RAMIPRIL
  5. SIMVASTATIN. [Concomitant]
     Active Substance: SIMVASTATIN
  6. ATENOLOL. [Suspect]
     Active Substance: ATENOLOL
     Indication: HYPERTENSION
     Route: 048
     Dates: start: 20190213
  7. WARFARIN [Suspect]
     Active Substance: WARFARIN
     Indication: ATRIAL FIBRILLATION
     Dosage: 2MG MONDAY AND THURSDAY, 1MG ALL OTHER DAYS
     Route: 048
     Dates: start: 20190213

REACTIONS (4)
  - Epistaxis [Recovered/Resolved]
  - Cardiac failure [Unknown]
  - Sinus node dysfunction [Recovered/Resolved]
  - Oedema [Unknown]

NARRATIVE: CASE EVENT DATE: 20190213
